FAERS Safety Report 22102399 (Version 1)
Quarter: 2023Q1

REPORT INFORMATION
  Report Type: Other
  Country: PT (occurrence: PT)
  Receive Date: 20230316
  Receipt Date: 20230316
  Transmission Date: 20230417
  Serious: Yes (Other)
  Sender: FDA-Public Use
  Company Number: PT-CELLTRION INC.-2023PT000591

PATIENT

DRUGS (1)
  1. HERZUMA [Suspect]
     Active Substance: TRASTUZUMAB-PKRB
     Indication: Breast cancer stage IV
     Dosage: 420 MILLIGRAM
     Dates: start: 20220929

REACTIONS (5)
  - Neuropathy peripheral [Unknown]
  - Feeling cold [Recovered/Resolved]
  - Tremor [Recovered/Resolved]
  - Nail disorder [Unknown]
  - Back pain [Unknown]

NARRATIVE: CASE EVENT DATE: 20220929
